FAERS Safety Report 5783200-8 (Version None)
Quarter: 2008Q2

REPORT INFORMATION
  Report Type: 
  Country: None (occurrence: None)
  Receive Date: 20080605
  Receipt Date: 20080313
  Transmission Date: 20081010
  Serious: No
  Sender: FDA-Public Use
  Company Number: A0715136A

PATIENT
  Age: 61 Year
  Sex: Female

DRUGS (3)
  1. ALLI [Suspect]
  2. PAIN MEDICATION [Concomitant]
  3. GLUCOPHAGE [Concomitant]

REACTIONS (3)
  - DIARRHOEA [None]
  - RECTAL DISCHARGE [None]
  - SPINAL COLUMN STENOSIS [None]
